FAERS Safety Report 18785321 (Version 2)
Quarter: 2021Q1

REPORT INFORMATION
  Report Type: Report from Study
  Country: US (occurrence: US)
  Receive Date: 20210125
  Receipt Date: 20210212
  Transmission Date: 20210419
  Serious: Yes (Life-Threatening, Other)
  Sender: FDA-Public Use
  Company Number: US-CELGENEUS-USA-20210101486

PATIENT
  Age: 72 Year
  Sex: Female
  Weight: 65.56 kg

DRUGS (6)
  1. DARATUMUMAB [Suspect]
     Active Substance: DARATUMUMAB
     Route: 041
     Dates: start: 20201207
  2. DEXAMETHASONE. [Suspect]
     Active Substance: DEXAMETHASONE
     Indication: PLASMA CELL MYELOMA
     Dosage: C1D1
     Route: 065
     Dates: start: 20201021
  3. POMALIDOMIDE [Suspect]
     Active Substance: POMALIDOMIDE
     Indication: PLASMA CELL MYELOMA
     Dosage: 4 MILLIGRAM?C1D1
     Route: 048
     Dates: start: 20201021
  4. DEXAMETHASONE. [Suspect]
     Active Substance: DEXAMETHASONE
     Dosage: C1D1
     Route: 065
     Dates: start: 20201207
  5. DARATUMUMAB [Suspect]
     Active Substance: DARATUMUMAB
     Indication: PLASMA CELL MYELOMA
     Route: 041
     Dates: start: 20201021
  6. IXAZOMIB [Suspect]
     Active Substance: IXAZOMIB
     Indication: PLASMA CELL MYELOMA
     Dosage: C1D1
     Route: 048
     Dates: start: 20201021

REACTIONS (1)
  - Neutrophil count decreased [Recovered/Resolved]

NARRATIVE: CASE EVENT DATE: 20201111
